FAERS Safety Report 5910944-7 (Version None)
Quarter: 2008Q4

REPORT INFORMATION
  Report Type: 
  Country: None (occurrence: None)
  Receive Date: 20081007
  Receipt Date: 20080716
  Transmission Date: 20090506
  Serious: No
  Sender: FDA-Public Use
  Company Number: CA-ASTRAZENECA-2008UW14296

PATIENT
  Age: 73 Year
  Sex: Female

DRUGS (2)
  1. ARIMIDEX [Suspect]
     Indication: BREAST CANCER
     Route: 048
     Dates: start: 20070101
  2. ARTHROTEC [Concomitant]
     Indication: ARTHRITIS

REACTIONS (3)
  - ARTHRITIS [None]
  - FLUSHING [None]
  - LIBIDO DECREASED [None]
